FAERS Safety Report 4509992-3 (Version None)
Quarter: 2004Q4

REPORT INFORMATION
  Report Type: 
  Country: None (occurrence: None)
  Receive Date: 20041124
  Receipt Date: 20041115
  Transmission Date: 20050328
  Serious: Yes (Hospitalization)
  Sender: FDA-Public Use
  Company Number: US-ABBOTT-04P-163-0280648-00

PATIENT
  Sex: Female
  Weight: 62.198 kg

DRUGS (6)
  1. SYNTHROID [Suspect]
     Indication: DRUG USE FOR UNKNOWN INDICATION
     Route: 048
     Dates: start: 19930101, end: 20040201
  2. SYNTHROID [Suspect]
     Route: 048
     Dates: start: 20040201
  3. HALDOL [Concomitant]
     Indication: DRUG USE FOR UNKNOWN INDICATION
  4. LISINOPRIL [Concomitant]
     Indication: DRUG USE FOR UNKNOWN INDICATION
  5. ZOCOR [Concomitant]
     Indication: DRUG USE FOR UNKNOWN INDICATION
  6. ALPRAZOLAM [Concomitant]
     Indication: NERVOUSNESS

REACTIONS (7)
  - ARTHRALGIA [None]
  - DRY MOUTH [None]
  - JOINT INJURY [None]
  - LIP DRY [None]
  - MASS [None]
  - SCIATICA [None]
  - TONGUE DRY [None]
